FAERS Safety Report 4872016-2 (Version None)
Quarter: 2006Q1

REPORT INFORMATION
  Report Type: 
  Country: None (occurrence: None)
  Receive Date: 20060104
  Receipt Date: 20051228
  Transmission Date: 20060701
  Serious: Yes (Hospitalization, Other)
  Sender: FDA-Public Use
  Company Number: US-BRISTOL-MYERS SQUIBB COMPANY-13231055

PATIENT
  Sex: Male

DRUGS (4)
  1. GLUCOVANCE [Suspect]
  2. LANTUS [Suspect]
     Dosage: DOSAGE FORM = UNIT
     Dates: start: 20051206
  3. GLIPIZIDE [Concomitant]
     Dates: start: 20051207
  4. LASIX [Concomitant]

REACTIONS (4)
  - BLOOD GLUCOSE INCREASED [None]
  - BLOOD POTASSIUM DECREASED [None]
  - CARDIAC FAILURE CONGESTIVE [None]
  - RENAL DISORDER [None]
